FAERS Safety Report 6147051-7 (Version None)
Quarter: 2009Q2

REPORT INFORMATION
  Report Type: 
  Country: None (occurrence: None)
  Receive Date: 20090402
  Receipt Date: 20090319
  Transmission Date: 20091009
  Serious: Yes (Hospitalization)
  Sender: FDA-Public Use
  Company Number: 2009S1005146

PATIENT
  Age: 51 Year
  Sex: Female

DRUGS (11)
  1. CITALOPRAM HYDROBROMIDE [Suspect]
     Indication: DEPRESSION
     Dosage: 10 MG; ORAL, 20 MG; ORAL
     Route: 048
     Dates: start: 20090213, end: 20090217
  2. CITALOPRAM HYDROBROMIDE [Suspect]
     Indication: DEPRESSION
     Dosage: 10 MG; ORAL, 20 MG; ORAL
     Route: 048
     Dates: start: 20090217, end: 20090218
  3. ADCORTYL [Concomitant]
  4. BECLOMETHASONE DIPROPIONATE [Concomitant]
  5. DIPROPIONATE [Concomitant]
  6. BENDROFLUMETHIAZIDE [Concomitant]
  7. DICLOFENAC [Concomitant]
  8. IRBESARTAN [Concomitant]
  9. LIDOCAINE [Concomitant]
  10. OMEPRAZOLE [Concomitant]
  11. SALBUTAMOL [Concomitant]

REACTIONS (4)
  - HEADACHE [None]
  - MIDDLE INSOMNIA [None]
  - VISION BLURRED [None]
  - VOMITING [None]
